FAERS Safety Report 7639737-X (Version None)
Quarter: 2011Q3

REPORT INFORMATION
  Report Type: 
  Country: None (occurrence: None)
  Receive Date: 20110727
  Receipt Date: 20110722
  Transmission Date: 20111222
  Serious: Yes (Hospitalization, Other)
  Sender: FDA-Public Use
  Company Number: FR-PFIZER INC-2011166540

PATIENT
  Age: 67 Year
  Sex: Male

DRUGS (7)
  1. ATORVASTATIN CALCIUM [Suspect]
     Route: 048
  2. LERCANIDIPINE [Concomitant]
     Dosage: UNK
     Dates: end: 20110223
  3. LANTUS [Concomitant]
  4. COLCHICINE [Suspect]
     Dosage: 1 DF PER DAY
     Route: 048
     Dates: start: 20040101
  5. BISOPROLOL FUMARATE [Concomitant]
  6. NOVORAPID [Concomitant]
  7. FEBUXOSTAT [Concomitant]
     Dosage: 80

REACTIONS (12)
  - MOTOR DYSFUNCTION [None]
  - WEIGHT DECREASED [None]
  - RENAL FAILURE [None]
  - BLOOD CREATINE PHOSPHOKINASE INCREASED [None]
  - POLYNEUROPATHY [None]
  - AMYOTROPHY [None]
  - TOXICITY TO VARIOUS AGENTS [None]
  - BLOOD CREATININE INCREASED [None]
  - NEPHROANGIOSCLEROSIS [None]
  - GENERAL PHYSICAL HEALTH DETERIORATION [None]
  - ATRIAL FIBRILLATION [None]
  - RHABDOMYOLYSIS [None]
